FAERS Safety Report 18553147 (Version 1)
Quarter: 2020Q4

REPORT INFORMATION
  Report Type: Other
  Country: IN (occurrence: IN)
  Receive Date: 20201127
  Receipt Date: 20201127
  Transmission Date: 20210114
  Serious: Yes (Hospitalization, Other)
  Sender: FDA-Public Use
  Company Number: IN-FDC LIMITED-2096360

PATIENT
  Age: 75 Year
  Sex: Male

DRUGS (4)
  1. BECOSULES [Concomitant]
     Route: 065
  2. CIPROFLOXACIN. [Suspect]
     Active Substance: CIPROFLOXACIN
     Indication: PRODUCT USED FOR UNKNOWN INDICATION
     Route: 048
  3. TINIDAZOLE. [Concomitant]
     Active Substance: TINIDAZOLE
     Route: 065
  4. RANITIDINE. [Concomitant]
     Active Substance: RANITIDINE
     Route: 065

REACTIONS (2)
  - Fixed eruption [Recovered/Resolved]
  - Product prescribing error [Unknown]
